FAERS Safety Report 6658042-1 (Version None)
Quarter: 2010Q1

REPORT INFORMATION
  Report Type: 
  Country: None (occurrence: None)
  Receive Date: 20100326
  Receipt Date: 20100317
  Transmission Date: 20100710
  Serious: Yes (Other)
  Sender: FDA-Public Use
  Company Number: 008869

PATIENT
  Age: 25 Year
  Sex: Female

DRUGS (1)
  1. KEPPRA [Suspect]
     Dosage: 2000 MG

REACTIONS (2)
  - DRUG EXPOSURE DURING PREGNANCY [None]
  - PREGNANCY [None]
